FAERS Safety Report 6596719-7 (Version None)
Quarter: 2010Q1

REPORT INFORMATION
  Report Type: 
  Country: None (occurrence: None)
  Receive Date: 20100223
  Receipt Date: 20100219
  Transmission Date: 20100710
  Serious: Yes (Other)
  Sender: FDA-Public Use
  Company Number: DE-TEVA-224810ISR

PATIENT
  Sex: Female

DRUGS (4)
  1. TIZANIDINE [Suspect]
     Indication: MUSCLE SPASTICITY
     Route: 048
  2. LEVOTHYROXINE SODIUM [Concomitant]
     Route: 048
  3. ANGELIQ [Concomitant]
     Route: 048
  4. ANTIBIOTICS [Concomitant]
     Indication: DENTAL CARE

REACTIONS (3)
  - BONE DISORDER [None]
  - INFECTION [None]
  - INFLAMMATION [None]
